FAERS Safety Report 5341820-9 (Version None)
Quarter: 2007Q2

REPORT INFORMATION
  Report Type: 
  Country: None (occurrence: None)
  Receive Date: 20070601
  Receipt Date: 20070521
  Transmission Date: 20071010
  Serious: Yes (Hospitalization, Disabling, Other)
  Sender: FDA-Public Use
  Company Number: US-ROCHE-473704

PATIENT
  Age: 18 Year
  Sex: Male
  Weight: 63.5 kg

DRUGS (5)
  1. ACCUTANE [Suspect]
     Indication: ACNE FULMINANS
     Route: 048
     Dates: start: 19961101, end: 19970201
  2. ACCUTANE [Suspect]
     Route: 048
     Dates: start: 19960601
  3. PREDNISONE TAB [Concomitant]
     Indication: ACNE
     Route: 048
     Dates: start: 19970101
  4. MINOCYCLINE HCL [Concomitant]
     Indication: ACNE
     Route: 048
  5. FLAGYL [Concomitant]
     Route: 048
     Dates: start: 19970217

REACTIONS (9)
  - ANAEMIA [None]
  - ARTHRITIS [None]
  - CLOSTRIDIAL INFECTION [None]
  - COLITIS ULCERATIVE [None]
  - DEPRESSION [None]
  - INFLAMMATORY BOWEL DISEASE [None]
  - INTESTINAL HAEMORRHAGE [None]
  - IRON DEFICIENCY ANAEMIA [None]
  - PSEUDOPOLYPOSIS [None]
